FAERS Safety Report 16157024 (Version 2)
Quarter: 2019Q3

REPORT INFORMATION
  Report Type: Spontaneous
  Country: US (occurrence: US)
  Receive Date: 20190404
  Receipt Date: 20190930
  Transmission Date: 20191004
  Serious: No
  Sender: FDA-Public Use
  Company Number: US-MYLANLABS-2019M1024557

PATIENT
  Age: 80 Year
  Sex: Female
  Weight: 73 kg

DRUGS (2)
  1. OLUX-E [Suspect]
     Active Substance: CLOBETASOL PROPIONATE
     Indication: BLISTER
  2. OLUX-E [Suspect]
     Active Substance: CLOBETASOL PROPIONATE
     Indication: PAIN OF SKIN
     Dosage: UNK
     Route: 003
     Dates: start: 20190313

REACTIONS (2)
  - Extra dose administered [Not Recovered/Not Resolved]
  - Drug ineffective [Not Recovered/Not Resolved]

NARRATIVE: CASE EVENT DATE: 201903
